FAERS Safety Report 5203852-0 (Version None)
Quarter: 2007Q1

REPORT INFORMATION
  Report Type: 
  Country: None (occurrence: None)
  Receive Date: 20070105
  Receipt Date: 20070105
  Transmission Date: 20070707
  Serious: Yes (Life-Threatening, Hospitalization, Other)
  Sender: FDA-Public Use
  Company Number: None

PATIENT
  Sex: Male
  Weight: 136.1 kg

DRUGS (11)
  1. MORPHINE [Suspect]
     Indication: PAIN
     Dosage: 4 MG IV Q 10 MIN VIA PCA
     Route: 042
     Dates: start: 20060805
  2. REGULAR INSULIN [Concomitant]
  3. DIAZEPAM [Concomitant]
  4. LISINOPRIL [Concomitant]
  5. MONTELUKAST [Concomitant]
  6. POTASSIUM CHLORIDE [Concomitant]
  7. VANCOMYCIN [Concomitant]
  8. ENOXAPARIN SODIUM [Concomitant]
  9. ALBUTEROL [Concomitant]
  10. FLUTICASONE INHALER [Concomitant]
  11. IRATROPIUM INHALER [Concomitant]

REACTIONS (4)
  - HYPOXIA [None]
  - INADEQUATE ANALGESIA [None]
  - LOSS OF CONSCIOUSNESS [None]
  - TACHYCARDIA [None]
